FAERS Safety Report 7137663-6 (Version None)
Quarter: 2010Q4

REPORT INFORMATION
  Report Type: 
  Country: None (occurrence: None)
  Receive Date: 20101119
  Receipt Date: 20101105
  Transmission Date: 20110411
  Serious: Yes (Other)
  Sender: FDA-Public Use
  Company Number: 8040622

PATIENT
  Sex: Male

DRUGS (3)
  1. KEPPRA [Suspect]
     Indication: CONVULSION
     Dosage: (500 MG TID TRANSPLACENTAL) (2000 MG, 750 MG Q AM, 500 MG Q 2 PM, 750 MG Q HS. TRANSPLACENTAL)
     Route: 064
  2. FOLIC ACID [Concomitant]
  3. PRENATAL VITAMINS /01549301/ [Concomitant]

REACTIONS (3)
  - CONGENITAL NAEVUS [None]
  - DRUG EXPOSURE DURING PREGNANCY [None]
  - PREMATURE BABY [None]
